FAERS Safety Report 15269958 (Version 1)
Quarter: 2018Q3

REPORT INFORMATION
  Report Type: Spontaneous
  Country: US (occurrence: US)
  Receive Date: 20180813
  Receipt Date: 20180813
  Transmission Date: 20181010
  Serious: No
  Sender: FDA-Public Use
  Company Number: US-PFIZER INC-2018323199

PATIENT

DRUGS (1)
  1. ADVIL LIQUI?GELS [Suspect]
     Active Substance: IBUPROFEN
     Indication: INFLAMMATION
     Dosage: 600 MG, SINGLE

REACTIONS (2)
  - Pollakiuria [Unknown]
  - Intentional product use issue [Unknown]
